FAERS Safety Report 25066396 (Version 1)
Quarter: 2025Q1

REPORT INFORMATION
  Report Type: Report from Study
  Country: US (occurrence: US)
  Receive Date: 20250312
  Receipt Date: 20250312
  Transmission Date: 20250408
  Serious: Yes (Hospitalization)
  Sender: JOHNSON AND JOHNSON
  Company Number: US-JNJFOC-20250310217

PATIENT
  Age: 72 Year

DRUGS (1)
  1. MACITENTAN\TADALAFIL [Suspect]
     Active Substance: MACITENTAN\TADALAFIL
     Indication: Product used for unknown indication

REACTIONS (1)
  - Pericardial effusion [Unknown]

NARRATIVE: CASE EVENT DATE: 20250227
